FAERS Safety Report 9699156 (Version 1)
Quarter: 2013Q4

REPORT INFORMATION
  Report Type: Spontaneous
  Country: US (occurrence: US)
  Receive Date: 20131120
  Receipt Date: 20131120
  Transmission Date: 20140711
  Serious: No
  Sender: FDA-Public Use
  Company Number: US-GILEAD-2008-0014786

PATIENT
  Age: 28 Year
  Sex: Female
  Weight: 72.57 kg

DRUGS (8)
  1. LETAIRIS [Suspect]
     Indication: PULMONARY ARTERIAL HYPERTENSION
     Route: 048
     Dates: start: 20070831
  2. FLOLAN [Concomitant]
     Indication: PULMONARY ARTERIAL HYPERTENSION
     Dosage: CONTINUOUS
     Route: 042
  3. WARFARIN SODIUM [Concomitant]
     Indication: ANTICOAGULANT THERAPY
     Dosage: DAILY
     Route: 048
  4. LOPRESSOR [Concomitant]
     Indication: ESSENTIAL HYPERTENSION
     Dosage: DAILY
     Route: 048
  5. TAPAZOLE [Concomitant]
     Indication: HYPERTHYROIDISM
     Dosage: DAILY
     Route: 048
  6. FERROUS SULFATE [Concomitant]
     Indication: ANAEMIA
     Dosage: DAILY
     Route: 048
  7. DIGOXIN [Concomitant]
     Indication: ESSENTIAL HYPERTENSION
     Dosage: DAILY
     Route: 048
  8. CITALOPRAM [Concomitant]
     Indication: MENOPAUSE
     Dosage: DAILY
     Route: 048

REACTIONS (1)
  - Inguinal mass [Not Recovered/Not Resolved]
